FAERS Safety Report 7380552-2 (Version None)
Quarter: 2011Q1

REPORT INFORMATION
  Report Type: 
  Country: None (occurrence: None)
  Receive Date: 20110321
  Receipt Date: 20110308
  Transmission Date: 20110831
  Serious: Yes (Death)
  Sender: FDA-Public Use
  Company Number: OPER20110034

PATIENT
  Age: 29 Year
  Sex: Male
  Weight: 136.0791 kg

DRUGS (3)
  1. OPANA ER [Suspect]
     Indication: PRODUCT USED FOR UNKNOWN INDICATION
     Dosage: 20 MG, ORAL
     Route: 048
  2. ALCOHOL (ETHANOL) [Suspect]
     Indication: ALCOHOL USE
     Dosage: ONCE, ORAL
     Route: 048
  3. DIAZEPAM [Suspect]
     Indication: PRODUCT USED FOR UNKNOWN INDICATION

REACTIONS (1)
  - ACCIDENTAL OVERDOSE [None]
